FAERS Safety Report 14552123 (Version 1)
Quarter: 2018Q1

REPORT INFORMATION
  Report Type: Spontaneous
  Country: US (occurrence: US)
  Receive Date: 20180216
  Receipt Date: 20180216
  Transmission Date: 20180509
  Serious: Yes (Hospitalization)
  Sender: FDA-Public Use
  Company Number: None

PATIENT
  Age: 67 Year
  Sex: Female
  Weight: 62.7 kg

DRUGS (11)
  1. ASPIRIN. [Concomitant]
     Active Substance: ASPIRIN
  2. DALTEPARIN [Suspect]
     Active Substance: DALTEPARIN
     Route: 058
     Dates: start: 20170928, end: 20180130
  3. XANAX [Concomitant]
     Active Substance: ALPRAZOLAM
  4. OXCARBAZEPINE (TRILEPTAL) [Concomitant]
  5. ALMODIPINE (NORVASC) [Concomitant]
  6. ZOFRAN [Concomitant]
     Active Substance: ONDANSETRON HYDROCHLORIDE
  7. LIPITOR [Concomitant]
     Active Substance: ATORVASTATIN CALCIUM
  8. PRILOSEC [Concomitant]
     Active Substance: OMEPRAZOLE MAGNESIUM
  9. VENLAFAXINE (EFFEXOR-XR) [Concomitant]
  10. ATIVAN [Concomitant]
     Active Substance: LORAZEPAM
  11. SUMATRIPTAN (MITREX) [Concomitant]

REACTIONS (1)
  - Asthenia [None]

NARRATIVE: CASE EVENT DATE: 20180208
